FAERS Safety Report 13959074 (Version 1)
Quarter: 2017Q3

REPORT INFORMATION
  Report Type: Spontaneous
  Country: US (occurrence: US)
  Receive Date: 20170912
  Receipt Date: 20170912
  Transmission Date: 20171128
  Serious: No
  Sender: FDA-Public Use
  Company Number: US-JNJFOC-20170817333

PATIENT
  Age: 74 Year
  Sex: Female
  Weight: 64.86 kg

DRUGS (7)
  1. ZYRTEC 10MG IR TABLET [Suspect]
     Active Substance: CETIRIZINE HYDROCHLORIDE
     Indication: MULTIPLE ALLERGIES
     Dosage: 1/2
     Route: 048
  2. ZYRTEC 10MG IR TABLET [Suspect]
     Active Substance: CETIRIZINE HYDROCHLORIDE
     Indication: INSOMNIA
     Dosage: 1/4 AT NIGHT, ONCE IN A WHILE
     Route: 048
  3. ZYRTEC 10MG IR TABLET [Suspect]
     Active Substance: CETIRIZINE HYDROCHLORIDE
     Indication: MULTIPLE ALLERGIES
     Route: 048
  4. ZYRTEC 10MG IR TABLET [Suspect]
     Active Substance: CETIRIZINE HYDROCHLORIDE
     Indication: MULTIPLE ALLERGIES
     Dosage: 1/4 AT NIGHT, ONCE IN A WHILE
     Route: 048
  5. ZYRTEC 10MG IR TABLET [Suspect]
     Active Substance: CETIRIZINE HYDROCHLORIDE
     Indication: INSOMNIA
     Dosage: 1/2
     Route: 048
  6. CALCIUM [Concomitant]
     Active Substance: CALCIUM
     Indication: PRODUCT USED FOR UNKNOWN INDICATION
     Route: 065
  7. ZYRTEC 10MG IR TABLET [Suspect]
     Active Substance: CETIRIZINE HYDROCHLORIDE
     Indication: INSOMNIA
     Route: 048

REACTIONS (5)
  - Off label use [Recovered/Resolved]
  - Somnolence [Recovered/Resolved]
  - Wrong technique in product usage process [Recovered/Resolved]
  - Product use in unapproved indication [Recovered/Resolved]
  - Therapeutic response unexpected [Unknown]
